FAERS Safety Report 6741627-1 (Version None)
Quarter: 2010Q2

REPORT INFORMATION
  Report Type: 
  Country: None (occurrence: None)
  Receive Date: 20100526
  Receipt Date: 20100514
  Transmission Date: 20101027
  Serious: Yes (Other)
  Sender: FDA-Public Use
  Company Number: US-BAYER-200930658NA

PATIENT
  Age: 22 Year
  Sex: Female
  Weight: 189 kg

DRUGS (1)
  1. YASMIN [Suspect]
     Indication: DRUG USE FOR UNKNOWN INDICATION
     Route: 048
     Dates: start: 20080401, end: 20080501

REACTIONS (6)
  - BACK PAIN [None]
  - DEEP VEIN THROMBOSIS [None]
  - DYSPNOEA EXERTIONAL [None]
  - DYSPNOEA PAROXYSMAL NOCTURNAL [None]
  - NAUSEA [None]
  - PULMONARY EMBOLISM [None]
